FAERS Safety Report 22699539 (Version 5)
Quarter: 2023Q4

REPORT INFORMATION
  Report Type: Spontaneous
  Country: US (occurrence: US)
  Receive Date: 20230713
  Receipt Date: 20231206
  Transmission Date: 20240110
  Serious: Yes (Other)
  Sender: FDA-Public Use
  Company Number: US-BRISTOL-MYERS SQUIBB COMPANY-2023-097363

PATIENT
  Age: 75 Year
  Sex: Female
  Weight: 72.57 kg

DRUGS (2)
  1. POMALYST [Suspect]
     Active Substance: POMALIDOMIDE
     Indication: Bone marrow transplant
     Dosage: TAKE 1 CAPSULE (2MG) BY MOUTH EVERY DAY/  3WKSON,1OFF
     Route: 048
     Dates: start: 20220628
  2. AMOXICILLIN [Suspect]
     Active Substance: AMOXICILLIN
     Indication: Animal scratch

REACTIONS (8)
  - Off label use [Unknown]
  - Animal scratch [Recovering/Resolving]
  - Diarrhoea [Recovering/Resolving]
  - Anorectal discomfort [Recovering/Resolving]
  - Fatigue [Unknown]
  - Tremor [Unknown]
  - Rash [Unknown]
  - Localised infection [Recovered/Resolved]
